FAERS Safety Report 24830035 (Version 2)
Quarter: 2025Q1

REPORT INFORMATION
  Report Type: Spontaneous
  Country: US (occurrence: US)
  Receive Date: 20250110
  Receipt Date: 20250120
  Transmission Date: 20250409
  Serious: Yes (Hospitalization, Other)
  Sender: ADVANZ PHARMA
  Company Number: US-MLMSERVICE-20241226-PI324563-00095-1

PATIENT

DRUGS (1)
  1. HYDROXYCHLOROQUINE [Suspect]
     Active Substance: HYDROXYCHLOROQUINE
     Indication: Sjogren^s syndrome

REACTIONS (7)
  - Clostridium bacteraemia [Recovered/Resolved]
  - Mental status changes [Recovered/Resolved]
  - Tachypnoea [Recovered/Resolved]
  - Hypotension [Recovered/Resolved]
  - Large intestine perforation [Recovered/Resolved]
  - Pneumoperitoneum [Recovered/Resolved]
  - Off label use [Recovered/Resolved]
